FAERS Safety Report 21883173 (Version 1)
Quarter: 2023Q1

REPORT INFORMATION
  Report Type: Report from Study
  Country: US (occurrence: US)
  Receive Date: 20230119
  Receipt Date: 20230119
  Transmission Date: 20230418
  Serious: Yes (Hospitalization)
  Sender: FDA-Public Use
  Company Number: US-ABBVIE-4275500

PATIENT
  Sex: Male

DRUGS (1)
  1. VENCLEXTA [Suspect]
     Active Substance: VENETOCLAX
     Indication: Non-Hodgkin^s lymphoma
     Route: 048
     Dates: start: 20221116

REACTIONS (2)
  - Localised infection [Recovering/Resolving]
  - Wound secretion [Recovering/Resolving]
